FAERS Safety Report 18246991 (Version 1)
Quarter: 2020Q3

REPORT INFORMATION
  Report Type: Spontaneous
  Country: IT (occurrence: IT)
  Receive Date: 20200909
  Receipt Date: 20200909
  Transmission Date: 20201103
  Serious: Yes (Death)
  Sender: FDA-Public Use
  Company Number: IT-ACCORD-199863

PATIENT
  Age: 70 Year
  Sex: Male
  Weight: 57 kg

DRUGS (4)
  1. CYRAMZA [Suspect]
     Active Substance: RAMUCIRUMAB
     Indication: PRODUCT USED FOR UNKNOWN INDICATION
     Route: 042
     Dates: start: 20200716, end: 20200716
  2. PREDNISONE EG [Concomitant]
     Dosage: STRENGTH: 5 MG
     Route: 048
  3. PACLITAXEL ACCORD [Suspect]
     Active Substance: PACLITAXEL
     Indication: PRODUCT USED FOR UNKNOWN INDICATION
     Dosage: STRENGTH: 6 MG / ML, CONCENTRATE FOR SOLUTION
     Route: 042
     Dates: start: 20200716, end: 20200716
  4. TARGIN [Concomitant]
     Active Substance: NALOXONE HYDROCHLORIDE\OXYCODONE HYDROCHLORIDE
     Dosage: STRENGTH:5 MG / 2.5 MG
     Dates: start: 20200719, end: 20200805

REACTIONS (4)
  - Microangiopathy [Fatal]
  - Thrombocytopenia [Fatal]
  - Anaemia [Fatal]
  - Haemolysis [Fatal]

NARRATIVE: CASE EVENT DATE: 20200723
